FAERS Safety Report 11718602 (Version 1)
Quarter: 2015Q4

REPORT INFORMATION
  Report Type: Spontaneous
  Country: ES (occurrence: ES)
  Receive Date: 20151109
  Receipt Date: 20151109
  Transmission Date: 20160304
  Serious: Yes (Hospitalization)
  Sender: FDA-Public Use
  Company Number: ES-PFIZER INC-2015377153

PATIENT
  Age: 45 Year
  Sex: Female

DRUGS (11)
  1. REVATIO [Suspect]
     Active Substance: SILDENAFIL CITRATE
     Indication: PORTOPULMONARY HYPERTENSION
     Dosage: 20 MG, 3X/DAY
     Route: 048
     Dates: start: 20140323, end: 20140410
  2. OMEPRAZOLE. [Concomitant]
     Active Substance: OMEPRAZOLE
     Dosage: 20 MG, 2X/DAY
     Route: 048
  3. PREDNISONE. [Concomitant]
     Active Substance: PREDNISONE
     Dosage: 10 MG, 1X/DAY
     Route: 048
  4. TRYPTIZOL [Concomitant]
     Active Substance: AMITRIPTYLINE HYDROCHLORIDE
     Dosage: 10 MG, 1X/DAY
     Route: 048
  5. TRACLEER [Interacting]
     Active Substance: BOSENTAN
     Indication: PORTOPULMONARY HYPERTENSION
     Dosage: LOW DOSE
     Route: 048
     Dates: start: 20140203
  6. PARACETAMOL [Concomitant]
     Active Substance: ACETAMINOPHEN
     Dosage: 1 G, 3X/DAY
     Route: 048
  7. REYATAZ [Interacting]
     Active Substance: ATAZANAVIR SULFATE
     Indication: HIV INFECTION CDC CATEGORY B
     Dosage: 200 MG, 2X/DAY
     Route: 048
     Dates: start: 20140403, end: 20140410
  8. TRACLEER [Interacting]
     Active Substance: BOSENTAN
     Dosage: 125 MG, 2X/DAY
     Route: 048
     Dates: start: 20140318, end: 20140410
  9. TRUVADA [Interacting]
     Active Substance: EMTRICITABINE\TENOFOVIR DISOPROXIL FUMARATE
     Indication: HIV INFECTION CDC CATEGORY B
     Dosage: 1 DF, 1X/DAY
     Route: 048
     Dates: start: 20040403
  10. FENDIVIA [Concomitant]
     Dosage: 12 ?G/HOUR
     Route: 062
  11. SINTROM [Concomitant]
     Active Substance: ACENOCOUMAROL
     Route: 048

REACTIONS (9)
  - Condition aggravated [Unknown]
  - Drug interaction [Recovered/Resolved]
  - Headache [Recovered/Resolved]
  - Eyelid oedema [Recovered/Resolved]
  - Face oedema [Recovered/Resolved]
  - Nasal congestion [Recovered/Resolved]
  - Toxicity to various agents [None]
  - Portopulmonary hypertension [Unknown]
  - Lacrimation increased [Recovered/Resolved]

NARRATIVE: CASE EVENT DATE: 20140401
